FAERS Safety Report 9350704 (Version 3)
Quarter: 2013Q3

REPORT INFORMATION
  Report Type: Report from Study
  Country: NZ (occurrence: NZ)
  Receive Date: 20130617
  Receipt Date: 20130813
  Transmission Date: 20140515
  Serious: Yes (Hospitalization, Other)
  Sender: FDA-Public Use
  Company Number: PHHY2013NZ060137

PATIENT
  Age: 70 Year
  Sex: Male

DRUGS (3)
  1. CLOZARIL [Suspect]
     Indication: SCHIZOPHRENIA
     Dosage: 50 MG, NOCTE
     Dates: start: 20130116
  2. CLOZARIL [Suspect]
     Dosage: 25 MG
     Dates: start: 20130205
  3. CLOZARIL [Suspect]
     Dosage: UNK
     Dates: end: 20130208

REACTIONS (17)
  - Sepsis [Recovered/Resolved]
  - Neutrophil count increased [Recovered/Resolved]
  - White blood cell count increased [Recovered/Resolved]
  - General physical condition abnormal [Recovered/Resolved]
  - Balance disorder [Recovered/Resolved]
  - Weight decreased [Recovered/Resolved]
  - Lower respiratory tract infection [Recovered/Resolved]
  - Pyrexia [Recovered/Resolved]
  - C-reactive protein increased [Recovered/Resolved]
  - Malaise [Recovered/Resolved]
  - Confusional state [Recovered/Resolved]
  - Night sweats [Recovered/Resolved]
  - Hyperhidrosis [Recovered/Resolved]
  - Cough [Recovered/Resolved]
  - Sedation [Recovered/Resolved]
  - Pulmonary mass [Recovered/Resolved]
  - Neck pain [Recovered/Resolved]
